FAERS Safety Report 10184621 (Version 1)
Quarter: 2014Q2

REPORT INFORMATION
  Report Type: Report from Study
  Country: NL (occurrence: None)
  Receive Date: 20140519
  Receipt Date: 20140519
  Transmission Date: 20141212
  Serious: Yes (Life-Threatening, Hospitalization)
  Sender: FDA-Public Use
  Company Number: INT_00382_2014

PATIENT
  Age: 61 Year
  Sex: Male

DRUGS (9)
  1. TENIPOSIDE [Suspect]
     Indication: PRODUCT USED FOR UNKNOWN INDICATION
     Route: 042
     Dates: start: 20140323, end: 20140324
  2. RITUXIMAB [Suspect]
     Indication: MALIGNANT LYMPHOID NEOPLASM
     Route: 042
     Dates: start: 20140321, end: 20140326
  3. METHOTREXATE [Suspect]
     Indication: PRODUCT USED FOR UNKNOWN INDICATION
     Route: 042
     Dates: start: 20140322
  4. BACTRIMEL [Concomitant]
  5. CEFTAZIDIME [Concomitant]
  6. DEXAMETHASONE [Concomitant]
  7. INSULIN [Concomitant]
  8. OMEPRAZOLE [Concomitant]
  9. MORPHINE [Concomitant]

REACTIONS (3)
  - Pneumocystis jirovecii pneumonia [None]
  - Respiratory disorder [None]
  - Toxicity to various agents [None]
